FAERS Safety Report 6864392-6 (Version None)
Quarter: 2010Q3

REPORT INFORMATION
  Report Type: 
  Country: None (occurrence: None)
  Receive Date: 20100721
  Receipt Date: 20080519
  Transmission Date: 20110219
  Serious: No
  Sender: FDA-Public Use
  Company Number: US-PFIZER INC-2008024919

PATIENT
  Sex: Female

DRUGS (4)
  1. CHANTIX [Suspect]
     Indication: SMOKING CESSATION THERAPY
     Dates: start: 20080201
  2. ZOLOFT [Suspect]
  3. ALL OTHER THERAPEUTIC PRODUCTS [Concomitant]
  4. ABILIFY [Concomitant]

REACTIONS (3)
  - ABNORMAL BEHAVIOUR [None]
  - DEPRESSION [None]
  - DRUG EFFECT DECREASED [None]
